FAERS Safety Report 5920382-9 (Version None)
Quarter: 2008Q4

REPORT INFORMATION
  Report Type: 
  Country: None (occurrence: None)
  Receive Date: 20081016
  Receipt Date: 20081008
  Transmission Date: 20090506
  Serious: Yes (Other)
  Sender: FDA-Public Use
  Company Number: PHHY2008FR24292

PATIENT
  Sex: Male

DRUGS (3)
  1. EXELON [Suspect]
     Dosage: 4.6 MG/DAY
     Route: 062
  2. EXELON [Suspect]
     Dosage: 9.5 MG/DAY
     Route: 062
  3. MODOPAR [Concomitant]

REACTIONS (1)
  - HEPATITIS [None]
